FAERS Safety Report 7563483-4 (Version None)
Quarter: 2011Q2

REPORT INFORMATION
  Report Type: 
  Country: None (occurrence: None)
  Receive Date: 20110622
  Receipt Date: 20110620
  Transmission Date: 20111010
  Serious: Yes (Other)
  Sender: FDA-Public Use
  Company Number: AU-PFIZER INC-2011136081

PATIENT
  Age: 20 Year
  Sex: Male

DRUGS (3)
  1. ZIPRASIDONE HYDROCHLORIDE [Suspect]
     Dosage: 80 MG, 2X/DAY
  2. ZIPRASIDONE HYDROCHLORIDE [Suspect]
     Indication: BIPOLAR DISORDER
     Dosage: 40 MG, 2X/DAY
  3. ZIPRASIDONE HYDROCHLORIDE [Suspect]
     Dosage: 60 MG, 2X/DAY

REACTIONS (3)
  - TREMOR [None]
  - ANXIETY [None]
  - SEDATION [None]
